FAERS Safety Report 5172574-7 (Version None)
Quarter: 2006Q4

REPORT INFORMATION
  Report Type: 
  Country: None (occurrence: None)
  Receive Date: 20061205
  Receipt Date: 20061120
  Transmission Date: 20070319
  Serious: Yes (Other)
  Sender: FDA-Public Use
  Company Number: 208201

PATIENT
  Age: 66 Year
  Sex: Male
  Weight: 100 kg

DRUGS (11)
  1. MABTHERA (RITUXIMAB)CONC FOR SOLUTION FOR INFUSION [Suspect]
     Indication: WALDENSTROM'S MACROGLOBULINAEMIA
     Dosage: INTRAVENOUS
     Route: 042
     Dates: start: 20021201, end: 20030101
  2. EDRONAX (REBOXETINE MESILATE) [Concomitant]
  3. STANGYL (?TRIMIPRAMINE MALEATE, TRIMIPRAMINE MESYLATE) [Concomitant]
  4. TAMSULOSIN HCL [Concomitant]
  5. DIPIPERON (PIPAMPERONE) [Concomitant]
  6. FOLIC ACID [Concomitant]
  7. CLINDAMYCIN HCL [Concomitant]
  8. CYCLOPHOSPHAMIDE [Concomitant]
  9. LIPOSOMAL DOXORUBICIN (DOXORUBICIN/DOXORUBICIN HYDROCHLORIDE) [Concomitant]
  10. VINCRISTINE [Concomitant]
  11. PREDNISONE TAB [Concomitant]

REACTIONS (13)
  - BLADDER DISORDER [None]
  - BLOOD IMMUNOGLOBULIN A DECREASED [None]
  - BLOOD IMMUNOGLOBULIN G DECREASED [None]
  - BLOOD IMMUNOGLOBULIN M DECREASED [None]
  - CD4 LYMPHOCYTES DECREASED [None]
  - DISEASE PROGRESSION [None]
  - HERPES ZOSTER MULTI-DERMATOMAL [None]
  - INFECTION IN AN IMMUNOCOMPROMISED HOST [None]
  - LYMPHANGIECTASIA [None]
  - LYMPHOPENIA [None]
  - MENINGITIS HERPES [None]
  - MONOPARESIS [None]
  - PNEUMONIA [None]
